FAERS Safety Report 23116042 (Version 1)
Quarter: 2023Q4

REPORT INFORMATION
  Report Type: Spontaneous
  Country: GB (occurrence: GB)
  Receive Date: 20231027
  Receipt Date: 20231027
  Transmission Date: 20240109
  Serious: Yes (Hospitalization, Other)
  Sender: FDA-Public Use
  Company Number: GB-BAXTER-2023BAX031655

PATIENT
  Age: 35 Year
  Sex: Male
  Weight: 86 kg

DRUGS (1)
  1. CALCIUM CL\DEXTROSE\MAGNESIUM CL\SODIUM BICAR\SODIUM CL\SODIUM LACT [Suspect]
     Active Substance: CALCIUM CHLORIDE\DEXTROSE MONOHYDRATE\MAGNESIUM CHLORIDE\SODIUM BICARBONATE\SODIUM CHLORIDE\SODIUM L
     Route: 033

REACTIONS (6)
  - Peritoneal dialysis complication [Recovered/Resolved]
  - Fatigue [Recovered/Resolved]
  - Dehydration [Recovered/Resolved]
  - Product dispensing error [Unknown]
  - Incorrect dose administered [Unknown]
  - Feeling abnormal [Recovered/Resolved]

NARRATIVE: CASE EVENT DATE: 20230905
